FAERS Safety Report 9567933 (Version 1)
Quarter: 2013Q3

REPORT INFORMATION
  Report Type: Spontaneous
  Country: US (occurrence: US)
  Receive Date: 20130930
  Receipt Date: 20130930
  Transmission Date: 20140515
  Serious: No
  Sender: FDA-Public Use
  Company Number: US-AMGEN-USASP2013057263

PATIENT
  Age: 40 Year
  Sex: Female
  Weight: 121.54 kg

DRUGS (3)
  1. ENBREL [Suspect]
     Indication: PRODUCT USED FOR UNKNOWN INDICATION
     Dosage: 50 MG, QWK
     Route: 058
  2. ASPIRIN [Concomitant]
     Dosage: 81 MG, UNK
     Route: 048
  3. DIPHENHYDRAMIN [Concomitant]
     Dosage: 25 MG, UNK
     Route: 048

REACTIONS (3)
  - Injection site rash [Unknown]
  - Injection site reaction [Unknown]
  - Injection site erythema [Unknown]
